FAERS Safety Report 25817178 (Version 1)
Quarter: 2025Q3

REPORT INFORMATION
  Report Type: Spontaneous
  Country: EU (occurrence: EU)
  Receive Date: 20250918
  Receipt Date: 20250918
  Transmission Date: 20251021
  Serious: Yes (Life-Threatening, Hospitalization)
  Sender: MYLAN
  Company Number: EU-MYLANLABS-2025M1077816

PATIENT
  Age: 59 Year
  Sex: Male

DRUGS (21)
  1. NOREPINEPHRINE [Suspect]
     Active Substance: NOREPINEPHRINE
     Indication: Hypotension
  2. LEVETIRACETAM [Suspect]
     Active Substance: LEVETIRACETAM
     Indication: Status epilepticus
  3. LEVETIRACETAM [Suspect]
     Active Substance: LEVETIRACETAM
     Indication: Partial seizures
  4. LACOSAMIDE [Suspect]
     Active Substance: LACOSAMIDE
     Indication: Status epilepticus
  5. LACOSAMIDE [Suspect]
     Active Substance: LACOSAMIDE
     Indication: Partial seizures
  6. NEORAL [Concomitant]
     Active Substance: CYCLOSPORINE
     Indication: Immunosuppressant drug therapy
  7. Solupred [Concomitant]
     Indication: Immunosuppressant drug therapy
  8. CELLCEPT [Concomitant]
     Active Substance: MYCOPHENOLATE MOFETIL
     Indication: Immunosuppressant drug therapy
  9. ECULIZUMAB [Concomitant]
     Active Substance: ECULIZUMAB
     Indication: Gastroenteritis Escherichia coli
  10. ECULIZUMAB [Concomitant]
     Active Substance: ECULIZUMAB
     Indication: Haemolytic uraemic syndrome
  11. AZITHROMYCIN [Concomitant]
     Active Substance: AZITHROMYCIN
     Indication: Gastroenteritis Escherichia coli
  12. AZITHROMYCIN [Concomitant]
     Active Substance: AZITHROMYCIN
     Indication: Haemolytic uraemic syndrome
  13. PROPOFOL [Concomitant]
     Active Substance: PROPOFOL
     Indication: Sedative therapy
  14. PROPOFOL [Concomitant]
     Active Substance: PROPOFOL
  15. PROPOFOL [Concomitant]
     Active Substance: PROPOFOL
  16. MIDAZOLAM [Concomitant]
     Active Substance: MIDAZOLAM
     Indication: Sedative therapy
  17. MIDAZOLAM [Concomitant]
     Active Substance: MIDAZOLAM
  18. MIDAZOLAM [Concomitant]
     Active Substance: MIDAZOLAM
  19. THIOPENTAL SODIUM [Concomitant]
     Active Substance: THIOPENTAL SODIUM
     Indication: Sedative therapy
  20. THIOPENTAL SODIUM [Concomitant]
     Active Substance: THIOPENTAL SODIUM
  21. THIOPENTAL SODIUM [Concomitant]
     Active Substance: THIOPENTAL SODIUM

REACTIONS (1)
  - Drug ineffective [Unknown]
